FAERS Safety Report 5079072-X (Version None)
Quarter: 2006Q3

REPORT INFORMATION
  Report Type: 
  Country: None (occurrence: None)
  Receive Date: 20060808
  Receipt Date: 20060728
  Transmission Date: 20061208
  Serious: Yes (Other)
  Sender: FDA-Public Use
  Company Number: 2006092850

PATIENT
  Sex: Female

DRUGS (4)
  1. LYRICA [Suspect]
     Indication: MULTIPLE SCLEROSIS
  2. LYRICA [Suspect]
     Indication: MUSCULAR DYSTROPHY
  3. VALIUM [Suspect]
     Indication: DRUG USE FOR UNKNOWN INDICATION
     Dosage: 5 MG
  4. ALL OTHER THERAPEUTIC PRODUCTS [Suspect]
     Indication: DRUG USE FOR UNKNOWN INDICATION

REACTIONS (1)
  - PARAPLEGIA [None]
